FAERS Safety Report 4809162-5 (Version None)
Quarter: 2005Q4

REPORT INFORMATION
  Report Type: 
  Country: None (occurrence: None)
  Receive Date: 20051021
  Receipt Date: 20021107
  Transmission Date: 20060501
  Serious: No
  Sender: FDA-Public Use
  Company Number: EWC021133017

PATIENT
  Age: 49 Year
  Sex: Female
  Weight: 60 kg

DRUGS (2)
  1. OLANZAPINE [Suspect]
     Indication: PSYCHOTIC DISORDER
     Dosage: 15 MG/DAY
     Dates: start: 20011101
  2. CLOTIAPINE [Concomitant]

REACTIONS (7)
  - ANAEMIA [None]
  - BLOOD IRON INCREASED [None]
  - MEAN CELL HAEMOGLOBIN CONCENTRATION INCREASED [None]
  - MEAN CELL VOLUME INCREASED [None]
  - PLATELET COUNT INCREASED [None]
  - TRANSFERRIN DECREASED [None]
  - WHITE BLOOD CELL COUNT INCREASED [None]
